FAERS Safety Report 9715997 (Version 1)
Quarter: 2013Q4

REPORT INFORMATION
  Report Type: Not Available
  Country: FR (occurrence: FR)
  Receive Date: 20131127
  Receipt Date: 20131127
  Transmission Date: 20140711
  Serious: Yes (Hospitalization, Other)
  Sender: FDA-Public Use
  Company Number: FR-NAPPMUNDI-GBR-2013-0016380

PATIENT
  Age: 50 Year
  Sex: Female

DRUGS (4)
  1. OXYNORM 5 MG, GELULE [Suspect]
     Indication: PAIN
     Dosage: 20 MG, DAILY
     Route: 048
  2. OXYCONTIN LP 10 MG, COMPRIME PELLICULE A LIBERATION PROLONGEE [Suspect]
     Indication: PAIN
     Dosage: 40 MG, DAILY
     Route: 048
  3. TOPALGIC /00599202/ [Suspect]
     Indication: PAIN
     Dosage: 150 MG, DAILY
     Route: 048
  4. NUROFEN [Suspect]
     Indication: PAIN
     Dosage: 400 MG, 6 DF DAILY
     Route: 048

REACTIONS (9)
  - Drug withdrawal syndrome [Unknown]
  - Drug abuse [Unknown]
  - Drug diversion [Unknown]
  - Mental disorder [Unknown]
  - Social problem [Unknown]
  - Emotional poverty [Unknown]
  - Asthenia [Unknown]
  - Apathy [Unknown]
  - Affective disorder [Unknown]
